FAERS Safety Report 18788489 (Version 1)
Quarter: 2021Q1

REPORT INFORMATION
  Report Type: Spontaneous
  Country: US (occurrence: US)
  Receive Date: 20210125
  Receipt Date: 20210125
  Transmission Date: 20210419
  Serious: No
  Sender: FDA-Public Use
  Company Number: US-ROCHE-2686497

PATIENT
  Sex: Female

DRUGS (1)
  1. RITUXAN [Suspect]
     Active Substance: RITUXIMAB
     Indication: NEUROMYELITIS OPTICA SPECTRUM DISORDER
     Dosage: 500 MG IV EVERY 5 MONTHS
     Route: 042

REACTIONS (6)
  - Intentional product use issue [Unknown]
  - Blood immunoglobulin G decreased [Unknown]
  - Atrophic vulvovaginitis [Unknown]
  - B-lymphocyte abnormalities [Unknown]
  - Blood immunoglobulin M decreased [Unknown]
  - Off label use [Unknown]

NARRATIVE: CASE EVENT DATE: 2018
